FAERS Safety Report 5486290-5 (Version None)
Quarter: 2007Q4

REPORT INFORMATION
  Report Type: 
  Country: None (occurrence: None)
  Receive Date: 20071016
  Receipt Date: 20071009
  Transmission Date: 20080405
  Serious: Yes (Other)
  Sender: FDA-Public Use
  Company Number: PHBS2007BR16882

PATIENT
  Age: 6 Year
  Sex: Female
  Weight: 16 kg

DRUGS (2)
  1. RIVOTRIL [Suspect]
     Indication: EPILEPSY
     Dosage: 5 DROPS, QHS
     Route: 048
     Dates: start: 20050101
  2. TEGRETOL [Suspect]
     Indication: EPILEPSY
     Dosage: 6 ML, BID
     Route: 048
     Dates: start: 20070401

REACTIONS (5)
  - DRUG INTERACTION [None]
  - ERYTHEMA [None]
  - HEADACHE [None]
  - SWELLING FACE [None]
  - WEIGHT INCREASED [None]
